FAERS Safety Report 18313742 (Version 3)
Quarter: 2020Q4

REPORT INFORMATION
  Report Type: Spontaneous
  Country: US (occurrence: US)
  Receive Date: 20200925
  Receipt Date: 20201125
  Transmission Date: 20210113
  Serious: Yes (Hospitalization)
  Sender: FDA-Public Use
  Company Number: US-EMD SERONO-9187482

PATIENT
  Age: 57 Year
  Sex: Male
  Weight: 58 kg

DRUGS (16)
  1. LEVOTHYROXINE. [Concomitant]
     Active Substance: LEVOTHYROXINE
     Indication: HYPOTHYROIDISM
     Route: 048
     Dates: start: 2020
  2. GABAPENTIN. [Concomitant]
     Active Substance: GABAPENTIN
     Indication: NEURALGIA
     Route: 048
     Dates: start: 202007
  3. OXYCODONE [Concomitant]
     Active Substance: OXYCODONE
     Route: 048
  4. VENLAFAXINE [Concomitant]
     Active Substance: VENLAFAXINE HYDROCHLORIDE
     Indication: PRODUCT USED FOR UNKNOWN INDICATION
     Route: 048
  5. DRONABINOL. [Concomitant]
     Active Substance: DRONABINOL
     Indication: PRODUCT USED FOR UNKNOWN INDICATION
     Route: 048
  6. PROCHLORPERAZINE. [Concomitant]
     Active Substance: PROCHLORPERAZINE
     Indication: VOMITING
  7. BAVENCIO [Suspect]
     Active Substance: AVELUMAB
     Indication: METASTATIC CARCINOMA OF THE BLADDER
     Route: 042
     Dates: start: 20200803, end: 20201023
  8. GABAPENTIN. [Concomitant]
     Active Substance: GABAPENTIN
     Route: 048
  9. OXYCODONE [Concomitant]
     Active Substance: OXYCODONE
     Indication: CANCER PAIN
     Route: 048
     Dates: start: 202002
  10. AMLODIPINE [Concomitant]
     Active Substance: AMLODIPINE BESYLATE
     Indication: HYPERTENSION
     Route: 048
  11. DOCUSATE [Concomitant]
     Active Substance: DOCUSATE
     Indication: CONSTIPATION
     Route: 048
  12. PROMETHAZINE [Concomitant]
     Active Substance: PROMETHAZINE HYDROCHLORIDE
     Indication: VOMITING
  13. TAMULOSIN [Concomitant]
     Active Substance: TAMSULOSIN
     Indication: PRODUCT USED FOR UNKNOWN INDICATION
     Route: 048
  14. PROMETHAZINE [Concomitant]
     Active Substance: PROMETHAZINE HYDROCHLORIDE
     Indication: NAUSEA
     Route: 054
  15. XTAMPZA ER [Concomitant]
     Active Substance: OXYCODONE
     Indication: CANCER PAIN
     Route: 048
     Dates: start: 202008
  16. PROCHLORPERAZINE. [Concomitant]
     Active Substance: PROCHLORPERAZINE
     Indication: NAUSEA
     Dosage: EVERY 6 HOURS AS NEEDED
     Route: 048

REACTIONS (6)
  - Cancer pain [Unknown]
  - Acute kidney injury [Recovered/Resolved]
  - Haematuria [Unknown]
  - Hepatic enzyme increased [Unknown]
  - Urinary tract infection [Unknown]
  - Constipation [Unknown]

NARRATIVE: CASE EVENT DATE: 20200916
